FAERS Safety Report 13424713 (Version 2)
Quarter: 2018Q1

REPORT INFORMATION
  Report Type: Report from Study
  Country: CA (occurrence: CA)
  Receive Date: 20170410
  Receipt Date: 20180111
  Transmission Date: 20180508
  Serious: Yes (Death)
  Sender: FDA-Public Use
  Company Number: CA-HLSUS-2017-CA-000298

PATIENT
  Age: 57 Year
  Sex: Female

DRUGS (8)
  1. CLOZAPINE. [Suspect]
     Active Substance: CLOZAPINE
     Indication: SCHIZOPHRENIA
     Dosage: 200 MG 1 EVERY 1 DAY
     Route: 048
  2. PANTOLOC [Concomitant]
     Active Substance: PANTOPRAZOLE SODIUM
     Indication: PRODUCT USED FOR UNKNOWN INDICATION
     Dosage: 40 MG 1  EVERY 1 DAY
     Route: 048
  3. SERTRALINE [Concomitant]
     Active Substance: SERTRALINE HYDROCHLORIDE
     Indication: PRODUCT USED FOR UNKNOWN INDICATION
     Dosage: 100 MG 1  EVERY 1 DAY
     Route: 048
  4. OLANZAPINE. [Concomitant]
     Active Substance: OLANZAPINE
     Indication: PRODUCT USED FOR UNKNOWN INDICATION
     Dosage: 30 MG 1  EVERY 1 DAY
     Route: 048
  5. CLONAZEPAM. [Concomitant]
     Active Substance: CLONAZEPAM
     Dosage: 2 MG 1  EVERY 1 DAY
     Route: 048
  6. DOCUSATE SODIUM. [Concomitant]
     Active Substance: DOCUSATE SODIUM
     Indication: PRODUCT USED FOR UNKNOWN INDICATION
     Dosage: 100 MG 2  EVERY 1 DAY
     Route: 048
  7. OMEPRAZOLE. [Concomitant]
     Active Substance: OMEPRAZOLE
     Indication: PRODUCT USED FOR UNKNOWN INDICATION
     Dosage: 40 MG 1  EVERY 1 DAY
     Route: 048
  8. VALPROIC ACID. [Concomitant]
     Active Substance: VALPROIC ACID
     Indication: PRODUCT USED FOR UNKNOWN INDICATION
     Dosage: 1000 MG 1  EVERY 1 DAY
     Route: 048

REACTIONS (2)
  - Intestinal ischaemia [Fatal]
  - Septic shock [Fatal]
